FAERS Safety Report 8056666-0 (Version None)
Quarter: 2012Q1

REPORT INFORMATION
  Report Type: 
  Country: None (occurrence: None)
  Receive Date: 20120119
  Receipt Date: 20120117
  Transmission Date: 20120608
  Serious: Yes (Life-Threatening, Hospitalization, Other)
  Sender: FDA-Public Use
  Company Number: PHHY2012GB000937

PATIENT
  Age: 59 Year
  Sex: Female
  Weight: 104.78 kg

DRUGS (23)
  1. PREDNISOLONE [Interacting]
     Dosage: 30 MG, UNK
     Dates: start: 20110816, end: 20110826
  2. ESTRADIOL VALERATE [Concomitant]
     Dosage: UNK
     Dates: start: 20110706, end: 20110928
  3. NICOTINE [Concomitant]
     Dosage: UNK
     Dates: start: 20110928, end: 20111012
  4. OMEPRAZOLE [Concomitant]
     Dosage: UNK
     Dates: start: 20110705
  5. LISINOPRIL [Interacting]
     Dosage: UNK
     Dates: start: 20101101
  6. ESTRADIOL VALERATE [Concomitant]
     Dosage: UNK
     Dates: start: 20111011
  7. AMOXICILLIN [Suspect]
     Dosage: UNK
     Dates: start: 20110816, end: 20110821
  8. AMLODIPINE [Concomitant]
     Dosage: UNK
     Dates: start: 20111012
  9. FLUTICASONE PROPIONATE [Concomitant]
     Dosage: UNK
     Dates: start: 20110705
  10. NICOTINE [Concomitant]
     Dosage: UNK
     Dates: start: 20110927, end: 20111004
  11. BENDROFLUMETHIAZIDE [Concomitant]
     Dosage: UNK
     Dates: start: 20110705, end: 20110823
  12. ACETAMINOPHEN AND CODEINE PHOSPHATE [Concomitant]
     Dosage: UNK
     Dates: start: 20110705
  13. FLUCONAZOLE [Concomitant]
     Dosage: UNK
     Dates: start: 20110816
  14. FLUOXETINE [Concomitant]
     Dosage: UNK
     Dates: start: 20110705
  15. FUROSEMIDE [Concomitant]
     Dosage: UNK
     Dates: start: 20110705
  16. THEOPHYLLINE [Concomitant]
     Dosage: UNK
     Dates: start: 20111011
  17. VENTOLIN [Concomitant]
     Dosage: UNK
     Dates: start: 20111011
  18. CETIRIZINE [Concomitant]
     Dosage: UNK
     Dates: start: 20110705
  19. EPIPEN [Concomitant]
     Dosage: UNK
     Dates: start: 20110927, end: 20110928
  20. ERYTHROMYCIN [Concomitant]
     Dosage: UNK
     Dates: start: 20111014
  21. FUCIDINE CAP [Concomitant]
     Dosage: UNK
     Dates: start: 20111014
  22. EPIPEN [Concomitant]
     Dosage: UNK
     Dates: start: 20111011, end: 20111012
  23. TIOPRONIN [Concomitant]
     Dosage: UNK
     Dates: start: 20110705

REACTIONS (5)
  - DRY THROAT [None]
  - DRUG INTERACTION [None]
  - BRONCHOSPASM [None]
  - ANAPHYLACTIC REACTION [None]
  - OROPHARYNGEAL PAIN [None]
